FAERS Safety Report 22517746 (Version 1)
Quarter: 2023Q2

REPORT INFORMATION
  Report Type: Spontaneous
  Country: US (occurrence: None)
  Receive Date: 20230604
  Receipt Date: 20230604
  Transmission Date: 20230722
  Serious: No
  Sender: FDA-Public Use
  Company Number: US-Merck Healthcare KGaA-9403977

PATIENT
  Age: 81 Year
  Sex: Male

DRUGS (1)
  1. BAVENCIO [Suspect]
     Active Substance: AVELUMAB
     Indication: Bladder cancer
     Dosage: 200 MG/10 ML INJECTION
     Route: 042
     Dates: start: 20230421

REACTIONS (1)
  - Skin lesion [Unknown]
